FAERS Safety Report 21254377 (Version 1)
Quarter: 2022Q3

REPORT INFORMATION
  Report Type: Spontaneous
  Country: CN (occurrence: CN)
  Receive Date: 20220825
  Receipt Date: 20220825
  Transmission Date: 20221027
  Serious: Yes (Other)
  Sender: FDA-Public Use
  Company Number: CN-PFIZER INC-PV202200042323

PATIENT
  Age: 56 Year
  Sex: Female

DRUGS (7)
  1. METHYLPREDNISOLONE SODIUM SUCCINATE [Suspect]
     Active Substance: METHYLPREDNISOLONE SODIUM SUCCINATE
     Indication: Drug therapy
     Dosage: 500 MG, 1X/DAY
     Route: 041
     Dates: start: 20210119, end: 20210123
  2. METHYLPREDNISOLONE SODIUM SUCCINATE [Suspect]
     Active Substance: METHYLPREDNISOLONE SODIUM SUCCINATE
     Indication: Neuromyelitis optica spectrum disorder
     Dosage: 250 MG, 1X/DAY
     Route: 041
     Dates: start: 20210124
  3. METHYLPREDNISOLONE SODIUM SUCCINATE [Suspect]
     Active Substance: METHYLPREDNISOLONE SODIUM SUCCINATE
     Dosage: SUCCESSIVELY HALVED AFTER EVERY 3 DAYS OF CONTINUOUS TREATMENT
     Route: 041
     Dates: start: 20210124
  4. GINKGO LEAF EXTRACT AND DIPYRIDAMOLE [Concomitant]
     Indication: Therapeutic procedure
     Dosage: 25 ML, 1X/DAY
     Route: 041
     Dates: start: 20210119
  5. GINKGO LEAF EXTRACT AND DIPYRIDAMOLE [Concomitant]
     Indication: Neuromyelitis optica spectrum disorder
  6. METHYLCOBALAMIN [Concomitant]
     Active Substance: METHYLCOBALAMIN
     Indication: Therapeutic procedure
     Dosage: 2 MG, 1X/DAY
     Route: 041
     Dates: start: 20210119
  7. METHYLCOBALAMIN [Concomitant]
     Active Substance: METHYLCOBALAMIN
     Indication: Neuromyelitis optica spectrum disorder

REACTIONS (2)
  - Retinal injury [Unknown]
  - Off label use [Unknown]

NARRATIVE: CASE EVENT DATE: 20210119
